FAERS Safety Report 15989780 (Version 2)
Quarter: 2019Q1

REPORT INFORMATION
  Report Type: Spontaneous
  Country: US (occurrence: US)
  Receive Date: 20190221
  Receipt Date: 20190227
  Transmission Date: 20190418
  Serious: No
  Sender: FDA-Public Use
  Company Number: US-009507513-1902USA008027

PATIENT
  Age: 30 Year
  Sex: Female
  Weight: 62.13 kg

DRUGS (2)
  1. PROAIR HFA [Concomitant]
     Active Substance: ALBUTEROL SULFATE
  2. NEXPLANON [Suspect]
     Active Substance: ETONOGESTREL
     Indication: CONTRACEPTION
     Dosage: 1 DOSAGE FORM
     Route: 059
     Dates: start: 20180918, end: 20190215

REACTIONS (3)
  - Furuncle [Recovering/Resolving]
  - Implant site erythema [Recovering/Resolving]
  - Implant site cellulitis [Recovering/Resolving]

NARRATIVE: CASE EVENT DATE: 20190125
